FAERS Safety Report 17669325 (Version 1)
Quarter: 2020Q2

REPORT INFORMATION
  Report Type: Report from Study
  Country: US (occurrence: US)
  Receive Date: 20200415
  Receipt Date: 20200415
  Transmission Date: 20200713
  Serious: Yes (Other)
  Sender: FDA-Public Use
  Company Number: US-ROCHE-2580123

PATIENT
  Sex: Female

DRUGS (14)
  1. OCREVUS [Suspect]
     Active Substance: OCRELIZUMAB
     Indication: MULTIPLE SCLEROSIS
     Dosage: STRENGTH: 30 MG/ML?600 MG AS MAINTENANCE DOSE EVERY SIX MONTHS
     Route: 042
     Dates: start: 20191004
  2. VALACYCLOVIR [Concomitant]
     Active Substance: VALACYCLOVIR HYDROCHLORIDE
     Route: 048
     Dates: start: 20190923
  3. DALFAMPRIDINE. [Concomitant]
     Active Substance: DALFAMPRIDINE
     Dosage: EXTENDED RELEASE 12 HOURS
     Route: 048
     Dates: start: 20190917
  4. ACETAMINOPHEN. [Concomitant]
     Active Substance: ACETAMINOPHEN
     Dosage: APPROX 30-60 MINUTES PRIOR
     Route: 048
  5. TROSPIUM [Concomitant]
     Active Substance: TROSPIUM
     Dosage: EXTENDED RELEASE 24 HOURS
     Route: 048
     Dates: start: 20190826
  6. PROLIA [Concomitant]
     Active Substance: DENOSUMAB
     Dosage: 60 MG/ML SYRINGE
     Route: 058
     Dates: start: 20191004
  7. DULOXETINE. [Concomitant]
     Active Substance: DULOXETINE
     Dosage: DELAYED RELEASE
     Route: 065
     Dates: start: 20190930
  8. METHENAMINE HIPPURATE. [Concomitant]
     Active Substance: METHENAMINE HIPPURATE
     Route: 048
     Dates: start: 20190918
  9. BACLOFEN. [Concomitant]
     Active Substance: BACLOFEN
     Route: 065
     Dates: start: 20190925
  10. LAMOTRIGINE. [Concomitant]
     Active Substance: LAMOTRIGINE
     Route: 048
     Dates: start: 20190912
  11. ESTRADIOL. [Concomitant]
     Active Substance: ESTRADIOL
     Dosage: 0.1 MG/G VAGINAL CREAM
     Route: 067
     Dates: start: 20190826
  12. METHYLPREDNISOLONE. [Concomitant]
     Active Substance: METHYLPREDNISOLONE
     Dosage: APPROX 30 MINUTES PRIOR
     Route: 042
  13. TRULANCE [Concomitant]
     Active Substance: PLECANATIDE
     Route: 048
     Dates: start: 20190925
  14. DIPHENHYDRAMINE. [Concomitant]
     Active Substance: DIPHENHYDRAMINE
     Dosage: APPROX 30-60 MINUTES PRIOR
     Route: 048

REACTIONS (1)
  - Urinary tract infection [Unknown]
